FAERS Safety Report 24534219 (Version 1)
Quarter: 2024Q4

REPORT INFORMATION
  Report Type: Spontaneous
  Country: US (occurrence: US)
  Receive Date: 20241022
  Receipt Date: 20241022
  Transmission Date: 20250115
  Serious: No
  Sender: ABBVIE
  Company Number: US-ABBVIE-5967672

PATIENT
  Sex: Female

DRUGS (1)
  1. RISANKIZUMAB [Suspect]
     Active Substance: RISANKIZUMAB
     Indication: Product used for unknown indication
     Route: 058

REACTIONS (6)
  - Contusion [Unknown]
  - Skin irritation [Unknown]
  - Urticaria [Unknown]
  - Erythema [Unknown]
  - Rash papular [Unknown]
  - Pruritus [Unknown]
